FAERS Safety Report 14223751 (Version 2)
Quarter: 2017Q4

REPORT INFORMATION
  Report Type: Spontaneous
  Country: IT (occurrence: IT)
  Receive Date: 20171125
  Receipt Date: 20171214
  Transmission Date: 20180321
  Serious: Yes (Other)
  Sender: FDA-Public Use
  Company Number: IT-ACCORD-061341

PATIENT
  Age: 58 Year
  Sex: Male

DRUGS (8)
  1. DEXAMETHASONE. [Suspect]
     Active Substance: DEXAMETHASONE
     Indication: PLASMA CELL MYELOMA
     Dosage: RECEIVED 5 LINE THERAPY (PAD) FROM 20-AUG-2015
     Dates: start: 20070801, end: 20081001
  2. CYCLOPHOSPHAMIDE/CYCLOPHOSPHAMIDE MONOHYDRATE [Concomitant]
     Dosage: DOSE: 1 G/MQ
     Dates: start: 20151029, end: 20151201
  3. DOXORUBICIN [Concomitant]
     Active Substance: DOXORUBICIN
     Dosage: DOSE: 30 MG/MQ DAY1
     Dates: start: 20150820
  4. DARATUMUMAB [Concomitant]
     Active Substance: DARATUMUMAB
  5. BENDAMUSTINE/BENDAMUSTINE HYDROCHLORIDE [Suspect]
     Active Substance: BENDAMUSTINE HYDROCHLORIDE
     Indication: PLASMA CELL MYELOMA
     Route: 042
     Dates: start: 20150219, end: 20150701
  6. LENALIDOMIDE [Concomitant]
     Active Substance: LENALIDOMIDE
     Dates: start: 20080924, end: 20150101
  7. VELCADE [Concomitant]
     Active Substance: BORTEZOMIB
     Dosage: DOSE: 1.3 MG/MQ
     Dates: start: 20120625, end: 20121105
  8. POMALIDOMIDE [Concomitant]
     Active Substance: POMALIDOMIDE
     Dates: start: 20151202, end: 20160601

REACTIONS (1)
  - Plasma cell myeloma [Unknown]
